FAERS Safety Report 17004989 (Version 1)
Quarter: 2019Q4

REPORT INFORMATION
  Report Type: Spontaneous
  Country: US (occurrence: US)
  Receive Date: 20190926
  Receipt Date: 20190926
  Transmission Date: 20200122
  Serious: Yes (Other)
  Sender: FDA-Public Use
  Company Number: None

PATIENT
  Age: 52 Year
  Sex: Female

DRUGS (1)
  1. CEFTAZIDIME 6 GM SAGENT PHARMACEUTICAL [Suspect]
     Active Substance: CEFTAZIDIME
     Indication: CELLULITIS
     Route: 042
     Dates: start: 20190831

REACTIONS (2)
  - Dyspnoea [None]
  - Fluid retention [None]

NARRATIVE: CASE EVENT DATE: 20190915
